FAERS Safety Report 23041998 (Version 4)
Quarter: 2024Q1

REPORT INFORMATION
  Report Type: Report from Study
  Country: None (occurrence: CN)
  Receive Date: 20231007
  Receipt Date: 20240111
  Transmission Date: 20240410
  Serious: Yes (Hospitalization)
  Sender: FDA-Public Use
  Company Number: CN-Jiangsu Hengrui Medicine Co., Ltd.-2146815

PATIENT
  Age: 43 Year
  Sex: Female
  Weight: 54.5 kg

DRUGS (11)
  1. DOCETAXEL [Suspect]
     Active Substance: DOCETAXEL\DOCETAXEL ANHYDROUS
     Indication: Invasive breast carcinoma
     Route: 041
     Dates: start: 20230729
  2. INVESTIGATIONAL BIOSIMILARS [Suspect]
     Active Substance: INVESTIGATIONAL BIOSIMILARS
     Route: 041
     Dates: start: 20230729
  3. TRASTUZUMAB [Suspect]
     Active Substance: TRASTUZUMAB
     Route: 041
     Dates: start: 20230729
  4. DEXAMETHASONE SODIUM PHOSPHATE [Concomitant]
     Active Substance: DEXAMETHASONE PHOSPHATE\DEXAMETHASONE SODIUM PHOSPHATE
     Route: 041
     Dates: start: 20230821, end: 20230821
  5. Lansoprazole for Injection [Concomitant]
     Route: 041
     Dates: start: 20230821, end: 20230821
  6. Ondansetron Hydrochloride Injection [Concomitant]
     Route: 041
     Dates: start: 20230821, end: 20230821
  7. ONDANSETRON [Concomitant]
     Active Substance: ONDANSETRON
     Route: 048
     Dates: start: 20230821, end: 20230821
  8. Magnesium Isoglycyrrhizinate Injection [Concomitant]
     Route: 041
     Dates: start: 20230821, end: 20230821
  9. Bicyclol Tablets [Concomitant]
     Route: 048
     Dates: start: 20230821, end: 20230821
  10. GLYCYRRHIZIN [Concomitant]
     Active Substance: GLYCYRRHIZIN
     Route: 048
     Dates: start: 20230823, end: 20230823
  11. PERJETA [Suspect]
     Active Substance: PERTUZUMAB

REACTIONS (3)
  - White blood cell count decreased [Recovered/Resolved]
  - Neutrophil count decreased [Recovered/Resolved]
  - Gastroenteritis [Recovered/Resolved]

NARRATIVE: CASE EVENT DATE: 20230827
